FAERS Safety Report 13586974 (Version 1)
Quarter: 2017Q2

REPORT INFORMATION
  Report Type: Spontaneous
  Country: US (occurrence: US)
  Receive Date: 20170526
  Receipt Date: 20170526
  Transmission Date: 20170830
  Serious: Yes (Hospitalization)
  Sender: FDA-Public Use
  Company Number: US-ROCHE-659415

PATIENT
  Age: 86 Year
  Sex: Male

DRUGS (15)
  1. RANIBIZUMAB [Suspect]
     Active Substance: RANIBIZUMAB
     Indication: AGE-RELATED MACULAR DEGENERATION
     Route: 031
     Dates: start: 20080416, end: 20090317
  2. PREVACID [Concomitant]
     Active Substance: LANSOPRAZOLE
     Indication: GASTROOESOPHAGEAL REFLUX DISEASE
     Dosage: DURATION: 1 WEEK 4 DAYS
     Route: 048
     Dates: start: 20090810, end: 20090820
  3. RANIBIZUMAB [Suspect]
     Active Substance: RANIBIZUMAB
     Dosage: LAST DOSE PRIOR TO SAE: 08 JULY 2009
     Route: 031
  4. ASMANEX [Concomitant]
     Active Substance: MOMETASONE FUROATE
     Indication: CHRONIC OBSTRUCTIVE PULMONARY DISEASE
     Dosage: ROUTE: RESPIRATORY (INHALATION); DURATION: 2 YEARS 41 WEEKS 5 DAYS
     Route: 055
     Dates: start: 20061103, end: 20090820
  5. PENICILLIN [Concomitant]
     Active Substance: PENICILLIN
     Indication: TOOTH INFECTION
     Dosage: DURATION: 1 WEEK 5 DAYS
     Route: 048
     Dates: start: 20090727, end: 20090807
  6. FLUTICASONE. [Concomitant]
     Active Substance: FLUTICASONE
     Indication: SINUSITIS
     Dosage: FORM: PUFF; ROUTE: RESPIRATORY (INHALATION),
     Route: 055
     Dates: start: 2006, end: 20090820
  7. VICODIN [Concomitant]
     Active Substance: ACETAMINOPHEN\HYDROCODONE BITARTRATE
     Indication: GOUT
     Dosage: DURATION: 1 WEEK 4 DAYS
     Route: 048
     Dates: start: 20090810, end: 20090820
  8. COUMADIN [Suspect]
     Active Substance: WARFARIN SODIUM
     Indication: ATRIAL FIBRILLATION
     Dosage: DURATION: 1 YEAR 6 WEEKS
     Route: 048
     Dates: start: 20080709, end: 20090820
  9. OCUVITE PRESERVISION [Concomitant]
     Indication: SUPPLEMENTATION THERAPY
     Route: 048
  10. NAPROXEN. [Suspect]
     Active Substance: NAPROXEN
     Indication: GOUT
     Dosage: DURATION: 1 WEEK 4 DAYS
     Route: 048
     Dates: start: 20090810, end: 20090820
  11. QUININE SULFATE. [Concomitant]
     Active Substance: QUININE SULFATE
     Indication: MUSCLE SPASMS
     Route: 048
     Dates: start: 2004, end: 20090820
  12. ALLEGRA [Concomitant]
     Active Substance: FEXOFENADINE HYDROCHLORIDE
     Indication: SINUSITIS
     Route: 048
     Dates: start: 2005, end: 20090820
  13. TAMSULOSIN [Concomitant]
     Active Substance: TAMSULOSIN
     Indication: BENIGN PROSTATIC HYPERPLASIA
     Route: 048
  14. GLUCOSAMINE [Concomitant]
     Active Substance: GLUCOSAMINE
     Indication: OSTEOARTHRITIS
     Route: 048
  15. ALBUTEROL. [Concomitant]
     Active Substance: ALBUTEROL
     Indication: CHRONIC OBSTRUCTIVE PULMONARY DISEASE
     Dosage: ROUTE: RESPIRATORY (INHALATION)
     Route: 055

REACTIONS (1)
  - Duodenal ulcer haemorrhage [Recovered/Resolved]

NARRATIVE: CASE EVENT DATE: 20090820
